FAERS Safety Report 8586241-0 (Version None)
Quarter: 2012Q3

REPORT INFORMATION
  Report Type: 
  Country: None (occurrence: None)
  Receive Date: 20120810
  Receipt Date: 20120806
  Transmission Date: 20120928
  Serious: Yes (Other)
  Sender: FDA-Public Use
  Company Number: BE-ROCHE-1097945

PATIENT
  Sex: Female
  Weight: 60 kg

DRUGS (1)
  1. ISOTRETINOIN [Suspect]
     Indication: ACNE
     Dosage: DOSING REGIMEN CONTINUED FOR 6 MONTHS
     Route: 048
     Dates: start: 20120101, end: 20120420

REACTIONS (1)
  - PLEURITIC PAIN [None]
